FAERS Safety Report 8804816 (Version 3)
Quarter: 2015Q3

REPORT INFORMATION
  Report Type: Report from Study
  Country: US (occurrence: US)
  Receive Date: 20120924
  Receipt Date: 20150731
  Transmission Date: 20151125
  Serious: Yes (Other)
  Sender: FDA-Public Use
  Company Number: US-ROCHE-1125720

PATIENT
  Sex: Male
  Weight: 78.18 kg

DRUGS (6)
  1. DEXAMETHASONE. [Concomitant]
     Active Substance: DEXAMETHASONE
     Route: 042
  2. DOXIL [Concomitant]
     Active Substance: DOXORUBICIN HYDROCHLORIDE
  3. AVASTIN [Suspect]
     Active Substance: BEVACIZUMAB
     Indication: METASTASES TO BONE
     Route: 042
  4. ZOFRAN [Concomitant]
     Active Substance: ONDANSETRON HYDROCHLORIDE
     Route: 042
  5. AVASTIN [Suspect]
     Active Substance: BEVACIZUMAB
     Indication: PROSTATE CANCER
     Route: 042
     Dates: start: 20061017
  6. TAXOTERE [Concomitant]
     Active Substance: DOCETAXEL
     Route: 042

REACTIONS (8)
  - Osteonecrosis of jaw [Unknown]
  - Appetite disorder [Unknown]
  - Off label use [Unknown]
  - Fatigue [Unknown]
  - Upper respiratory tract infection [Unknown]
  - Hypertension [Unknown]
  - Tooth disorder [Unknown]
  - Diarrhoea [Unknown]
